FAERS Safety Report 25529635 (Version 1)
Quarter: 2025Q3

REPORT INFORMATION
  Report Type: Other
  Country: PE (occurrence: PE)
  Receive Date: 20250708
  Receipt Date: 20250708
  Transmission Date: 20251021
  Serious: Yes (Death, Hospitalization)
  Sender: KNIGHT THERAPEUTICS
  Company Number: PE-Knight Therapeutics (USA) Inc.-2180111

PATIENT

DRUGS (3)
  1. IMPAVIDO [Suspect]
     Active Substance: MILTEFOSINE
     Indication: Central nervous system infection
  2. VORICONAZOLE [Suspect]
     Active Substance: VORICONAZOLE
  3. ALBENDAZOLE [Suspect]
     Active Substance: ALBENDAZOLE

REACTIONS (2)
  - Death [Fatal]
  - Product prescribing issue [Unknown]
